FAERS Safety Report 6752482-8 (Version None)
Quarter: 2010Q2

REPORT INFORMATION
  Report Type: 
  Country: None (occurrence: None)
  Receive Date: 20100601
  Receipt Date: 20100601
  Transmission Date: 20101027
  Serious: Yes (Other)
  Sender: FDA-Public Use
  Company Number: None

PATIENT
  Age: 60 Year
  Sex: Male
  Weight: 95.2554 kg

DRUGS (2)
  1. ANDROGEL [Suspect]
     Indication: ASTHENIA
     Dosage: 4 SQUIRTS 1/ DAY CUTANEOUS
     Route: 003
     Dates: start: 20091201, end: 20100515
  2. ANDROGEL [Suspect]
     Indication: LOSS OF LIBIDO
     Dosage: 4 SQUIRTS 1/ DAY CUTANEOUS
     Route: 003
     Dates: start: 20091201, end: 20100515

REACTIONS (4)
  - AMNESIA [None]
  - ANGER [None]
  - DISTURBANCE IN ATTENTION [None]
  - PERSONALITY CHANGE [None]
